FAERS Safety Report 5347184-9 (Version None)
Quarter: 2007Q2

REPORT INFORMATION
  Report Type: 
  Country: None (occurrence: None)
  Receive Date: 20070606
  Receipt Date: 20070524
  Transmission Date: 20071010
  Serious: Yes (Hospitalization)
  Sender: FDA-Public Use
  Company Number: PHBS2005SE15459

PATIENT
  Age: 1 Day
  Sex: Female

DRUGS (5)
  1. MADOPARK QUICK MITE [Suspect]
     Route: 064
  2. COMTESS [Suspect]
     Route: 064
  3. MADOPARK [Suspect]
     Route: 064
  4. PRAVIDEL [Suspect]
     Route: 064
  5. STALEVO 100 [Suspect]
     Route: 064

REACTIONS (6)
  - C-REACTIVE PROTEIN INCREASED [None]
  - CONVULSION [None]
  - DRUG EXPOSURE DURING PREGNANCY [None]
  - MUSCLE SPASMS [None]
  - PNEUMONIA [None]
  - RESPIRATORY RATE INCREASED [None]
